FAERS Safety Report 12078216 (Version 1)
Quarter: 2016Q1

REPORT INFORMATION
  Report Type: Spontaneous
  Country: US (occurrence: US)
  Receive Date: 20160215
  Receipt Date: 20160215
  Transmission Date: 20160526
  Serious: Yes (Other)
  Sender: FDA-Public Use
  Company Number: US-HOSPIRA-3167817

PATIENT
  Sex: Female

DRUGS (1)
  1. DEXMEDETOMIDINE HYDROCHLORIDE. [Suspect]
     Active Substance: DEXMEDETOMIDINE HYDROCHLORIDE
     Indication: SEDATIVE THERAPY
     Dosage: INITIAL DOSE OF 2.5-3 MCG/KG, INTRANASAL

REACTIONS (3)
  - Dyspnoea [Recovered/Resolved]
  - Obstructive airways disorder [Recovered/Resolved]
  - Condition aggravated [Recovered/Resolved]
